FAERS Safety Report 4366302-2 (Version None)
Quarter: 2004Q2

REPORT INFORMATION
  Report Type: 
  Country: None (occurrence: None)
  Receive Date: 20040526
  Receipt Date: 20040526
  Transmission Date: 20050107
  Serious: Yes (Life-Threatening, Hospitalization)
  Sender: FDA-Public Use
  Company Number: None

PATIENT
  Age: 75 Year
  Sex: Female
  Weight: 86.1834 kg

DRUGS (3)
  1. DIOVAN [Suspect]
     Indication: HYPERTENSION
     Dosage: 180 MG TWICE DAIL ORAL
     Route: 048
  2. LASIX [Suspect]
     Indication: CORONARY ARTERY DISEASE
     Dosage: 20 MG- DAILY ORAL
     Route: 048
  3. MOBIC [Concomitant]

REACTIONS (2)
  - COUGH [None]
  - DYSPNOEA [None]
